FAERS Safety Report 4875633-9 (Version None)
Quarter: 2006Q1

REPORT INFORMATION
  Report Type: 
  Country: None (occurrence: None)
  Receive Date: 20060105
  Receipt Date: 20051226
  Transmission Date: 20060701
  Serious: Yes (Other)
  Sender: FDA-Public Use
  Company Number: 2005151429

PATIENT
  Age: 11 Year
  Sex: Male

DRUGS (3)
  1. GENOTROPIN [Suspect]
     Indication: HYPOPITUITARISM
     Dates: start: 20021108
  2. GENOTROPIN [Suspect]
     Indication: HYPOPITUITARISM
     Dates: start: 20050225
  3. LEVOTHYROXINE SODIUM [Concomitant]

REACTIONS (7)
  - BRAIN COMPRESSION [None]
  - CEREBELLAR SYNDROME [None]
  - COORDINATION ABNORMAL [None]
  - DIZZINESS [None]
  - INTENTION TREMOR [None]
  - MULTIPLE SYSTEM ATROPHY [None]
  - MUSCLE TWITCHING [None]
